FAERS Safety Report 18610494 (Version 1)
Quarter: 2020Q4

REPORT INFORMATION
  Report Type: Spontaneous
  Country: FR (occurrence: FR)
  Receive Date: 20201214
  Receipt Date: 20201214
  Transmission Date: 20210114
  Serious: Yes (Other)
  Sender: FDA-Public Use
  Company Number: FR-SAMSUNG BIOEPIS-SB-2020-36907

PATIENT
  Age: 54 Year
  Sex: Female
  Weight: 54 kg

DRUGS (3)
  1. INFLIXIMAB [Suspect]
     Active Substance: INFLIXIMAB
     Indication: PSORIATIC ARTHROPATHY
     Route: 042
     Dates: start: 20200424, end: 20200424
  2. HEXATRIONE [Suspect]
     Active Substance: TRIAMCINOLONE HEXACETONIDE
     Indication: PSORIATIC ARTHROPATHY
     Dosage: UNKNOWN
     Route: 014
     Dates: start: 20200424, end: 20200424
  3. ESOMEPRAZOLE. [Concomitant]
     Active Substance: ESOMEPRAZOLE MAGNESIUM
     Indication: PRODUCT USED FOR UNKNOWN INDICATION
     Dosage: UNKNOWN
     Route: 065

REACTIONS (5)
  - Chest discomfort [Recovered/Resolved]
  - Abdominal pain upper [Recovered/Resolved]
  - Tachycardia [Recovered/Resolved]
  - Flushing [Recovered/Resolved]
  - Product use issue [Unknown]

NARRATIVE: CASE EVENT DATE: 20200424
